FAERS Safety Report 6382380-3 (Version None)
Quarter: 2009Q3

REPORT INFORMATION
  Report Type: 
  Country: None (occurrence: None)
  Receive Date: 20090928
  Receipt Date: 20090928
  Transmission Date: 20100115
  Serious: Yes (Life-Threatening)
  Sender: FDA-Public Use
  Company Number: None

PATIENT
  Age: 52 Year
  Sex: Female
  Weight: 81.6475 kg

DRUGS (1)
  1. ABILIFY [Suspect]
     Indication: BIPOLAR DISORDER
     Dosage: 2 MG TABLET 1 X DAY IN A.M. SWALLOW
     Route: 048
     Dates: start: 20090820, end: 20090826

REACTIONS (4)
  - DEPRESSION [None]
  - FEAR OF DEATH [None]
  - NEUROLEPTIC MALIGNANT SYNDROME [None]
  - SUICIDAL IDEATION [None]
